FAERS Safety Report 15089753 (Version 1)
Quarter: 2018Q2

REPORT INFORMATION
  Report Type: Report from Study
  Country: DE (occurrence: DE)
  Receive Date: 20180629
  Receipt Date: 20180629
  Transmission Date: 20180711
  Serious: Yes (Hospitalization)
  Sender: FDA-Public Use
  Company Number: DE-TEVA-2018-DE-918839

PATIENT
  Age: 68 Year
  Sex: Male
  Weight: 109 kg

DRUGS (10)
  1. AVELUMAB [Suspect]
     Active Substance: AVELUMAB
     Indication: COLORECTAL CANCER METASTATIC
     Dosage: 1120 MILLIGRAM DAILY;
     Route: 042
     Dates: start: 20180522
  2. AVELUMAB [Suspect]
     Active Substance: AVELUMAB
     Dosage: 1120 MILLIGRAM DAILY;
     Route: 042
     Dates: start: 20180607
  3. CETUXIMAB. [Suspect]
     Active Substance: CETUXIMAB
     Dosage: 625 MILLIGRAM DAILY;
     Route: 042
     Dates: start: 20180607
  4. 5-FU [Suspect]
     Active Substance: FLUOROURACIL
     Indication: COLORECTAL CANCER METASTATIC
     Dosage: 1000 MILLIGRAM DAILY;
     Route: 042
     Dates: start: 20180508
  5. OXALIPLATIN. [Suspect]
     Active Substance: OXALIPLATIN
     Indication: COLORECTAL CANCER METASTATIC
     Dosage: 212 MILLIGRAM DAILY;
     Route: 042
     Dates: start: 20180508
  6. LEUCOVORIN. [Suspect]
     Active Substance: LEUCOVORIN
     Indication: COLORECTAL CANCER METASTATIC
     Dosage: 1000 MILLIGRAM DAILY;
     Route: 042
     Dates: start: 20180508
  7. OXALIPLATIN. [Suspect]
     Active Substance: OXALIPLATIN
     Dosage: 212 MILLIGRAM DAILY;
     Route: 042
     Dates: start: 20180607
  8. 5-FU [Suspect]
     Active Substance: FLUOROURACIL
     Dosage: 1000 MILLIGRAM DAILY;
     Route: 042
     Dates: start: 20180613
  9. CETUXIMAB. [Suspect]
     Active Substance: CETUXIMAB
     Indication: COLORECTAL CANCER METASTATIC
     Dosage: 625 MILLIGRAM DAILY;
     Route: 042
     Dates: start: 20180508
  10. LEUCOVORIN. [Suspect]
     Active Substance: LEUCOVORIN
     Dosage: 1000 MILLIGRAM DAILY;
     Route: 042
     Dates: start: 20180608

REACTIONS (1)
  - Dermatitis acneiform [Not Recovered/Not Resolved]

NARRATIVE: CASE EVENT DATE: 20180618
